FAERS Safety Report 8422146-3 (Version None)
Quarter: 2012Q2

REPORT INFORMATION
  Report Type: 
  Country: None (occurrence: None)
  Receive Date: 20120608
  Receipt Date: 20120606
  Transmission Date: 20120825
  Serious: Yes (Hospitalization)
  Sender: FDA-Public Use
  Company Number: PHFR2012GB002781

PATIENT
  Sex: Female
  Weight: 64.2 kg

DRUGS (5)
  1. ONBREZ [Suspect]
     Dates: start: 20120430, end: 20120502
  2. CENTRUM [Concomitant]
     Indication: VITAMIN SUPPLEMENTATION
     Dosage: 1 DF, UNK
     Route: 048
     Dates: start: 20110101
  3. ARIPIPRAZOLE [Concomitant]
     Indication: PSYCHOTIC DISORDER
     Dosage: 10 MG, UNK
     Route: 048
     Dates: start: 20120301
  4. FLUOXETINE [Concomitant]
     Indication: DEPRESSION
     Dosage: 20 MG, UNK
     Route: 048
     Dates: start: 20120301
  5. YASMIN [Concomitant]
     Dosage: 1 DF, UNK
     Route: 048

REACTIONS (1)
  - LIP SWELLING [None]
